FAERS Safety Report 6261372-9 (Version None)
Quarter: 2009Q3

REPORT INFORMATION
  Report Type: 
  Country: None (occurrence: None)
  Receive Date: 20090709
  Receipt Date: 20090702
  Transmission Date: 20100115
  Serious: Yes (Other)
  Sender: FDA-Public Use
  Company Number: ES-PFIZER INC-2009235181

PATIENT
  Age: 56 Year

DRUGS (1)
  1. CARDYL [Suspect]
     Indication: HYPERLIPIDAEMIA
     Dosage: 40 MG, 1X/DAY
     Route: 048
     Dates: start: 20081024, end: 20090227

REACTIONS (1)
  - ERECTILE DYSFUNCTION [None]
